FAERS Safety Report 9335884 (Version 1)
Quarter: 2013Q2

REPORT INFORMATION
  Report Type: Report from Study
  Country: JP (occurrence: JP)
  Receive Date: 20130607
  Receipt Date: 20130607
  Transmission Date: 20140414
  Serious: Yes (Death, Other)
  Sender: FDA-Public Use
  Company Number: JP-ROCHE-1229463

PATIENT
  Sex: 0

DRUGS (5)
  1. BEVACIZUMAB [Suspect]
     Indication: COLORECTAL CANCER METASTATIC
     Dosage: (ARM A)
     Route: 065
  2. BEVACIZUMAB [Suspect]
     Dosage: (ARM B)
     Route: 065
  3. FOLINIC ACID [Suspect]
     Indication: COLORECTAL CANCER METASTATIC
     Route: 065
  4. FLUOROURACIL [Suspect]
     Indication: COLORECTAL CANCER METASTATIC
     Route: 065
  5. IRINOTECAN [Suspect]
     Indication: COLORECTAL CANCER METASTATIC
     Route: 065

REACTIONS (7)
  - Death [Fatal]
  - Neutropenia [Unknown]
  - Fatigue [Unknown]
  - Decreased appetite [Unknown]
  - Gastrointestinal perforation [Unknown]
  - Hypertension [Unknown]
  - Proteinuria [Unknown]
